FAERS Safety Report 9034443 (Version 1)
Quarter: 2013Q1

REPORT INFORMATION
  Report Type: Spontaneous
  Country: US (occurrence: None)
  Receive Date: 20130116
  Receipt Date: 20130116
  Transmission Date: 20140127
  Serious: Yes (Other)
  Sender: FDA-Public Use
  Company Number: None

PATIENT
  Age: 60 Year
  Sex: Female
  Weight: 93.44 kg

DRUGS (2)
  1. CARBOPLATIN 600 MG/60ML HOSPIRA [Suspect]
     Indication: LUNG NEOPLASM MALIGNANT
     Dosage: 650MG IV 1ST DOSE
     Route: 042
  2. ALIMTA [Concomitant]

REACTIONS (5)
  - Paraesthesia [None]
  - Vision blurred [None]
  - Blood pressure increased [None]
  - Heart rate increased [None]
  - Infusion related reaction [None]
